FAERS Safety Report 7395137-1 (Version None)
Quarter: 2011Q2

REPORT INFORMATION
  Report Type: 
  Country: None (occurrence: None)
  Receive Date: 20110405
  Receipt Date: 20110331
  Transmission Date: 20111010
  Serious: Yes (Hospitalization, Other)
  Sender: FDA-Public Use
  Company Number: BR-ABBOTT-11P-020-0715984-00

PATIENT
  Sex: Male
  Weight: 78 kg

DRUGS (7)
  1. HUMIRA [Suspect]
     Route: 058
  2. HUMIRA [Suspect]
     Indication: CROHN'S DISEASE
     Dosage: INDUCTION DOSE
     Route: 058
     Dates: start: 20101101
  3. CIPROFLOXACIN [Concomitant]
     Indication: ANTIINFLAMMATORY THERAPY
     Route: 048
     Dates: start: 20050101
  4. AZATHIOPRINE [Concomitant]
     Indication: DRUG SPECIFIC ANTIBODY PRESENT
     Route: 048
     Dates: start: 20020101
  5. HUMIRA [Suspect]
     Route: 058
  6. TRAMADOL [Concomitant]
     Indication: INFLAMMATION
  7. METRONIDAZOLE [Concomitant]
     Indication: ANTIINFLAMMATORY THERAPY
     Route: 048
     Dates: start: 20020101

REACTIONS (6)
  - ANAL INFECTION [None]
  - WOUND DEHISCENCE [None]
  - ANAL INFLAMMATION [None]
  - CROHN'S DISEASE [None]
  - BEDRIDDEN [None]
  - INCISION SITE PAIN [None]
